FAERS Safety Report 9342493 (Version 3)
Quarter: 2013Q3

REPORT INFORMATION
  Report Type: Spontaneous
  Country: DE (occurrence: DE)
  Receive Date: 20130611
  Receipt Date: 20130719
  Transmission Date: 20140515
  Serious: Yes (Hospitalization)
  Sender: FDA-Public Use
  Company Number: DE-AMGEN-DEUSP2013040607

PATIENT
  Sex: Male

DRUGS (14)
  1. PEGFILGRASTIM [Suspect]
     Indication: B-CELL LYMPHOMA
     Dosage: 6 MG, 1 TIMES A DAY FOR 1 DAY
     Route: 058
     Dates: start: 20130513, end: 20130513
  2. RITUXIMAB [Suspect]
     Indication: B-CELL LYMPHOMA
     Dosage: 890 MG, ONE IN ONE DAY
     Route: 042
     Dates: start: 20130510, end: 20130510
  3. CYCLOPHOSPHAMIDE [Suspect]
     Indication: B-CELL LYMPHOMA
     Dosage: 1780 MG, QD
     Route: 042
     Dates: start: 20130510, end: 20130510
  4. DOXORUBICIN [Suspect]
     Indication: B-CELL LYMPHOMA
     Dosage: 118 MG, 1 IN 1 D
     Route: 042
     Dates: start: 20130510, end: 20130510
  5. PREDNISONE [Concomitant]
     Indication: B-CELL LYMPHOMA
     Dosage: 500 MG, 1 TIMES A DAY FOR 5 DAYS
     Route: 048
     Dates: start: 20130510, end: 20130514
  6. PANTOPRAZOLE SODIUM [Concomitant]
     Indication: GASTROOESOPHAGEAL REFLUX DISEASE
     Dosage: UNK
     Route: 048
  7. ENOXAPARIN SODIUM [Concomitant]
     Indication: ATRIAL FIBRILLATION
     Dosage: UNK
     Route: 048
  8. GLIBENCLAMIDE [Concomitant]
     Indication: DIABETES MELLITUS
     Dosage: UNK
     Route: 048
  9. SULFAMETHOXAZOLE W/TRIMETHOPRIM [Concomitant]
     Dosage: UNK
     Route: 048
  10. CHLORTALIDONE [Concomitant]
     Indication: DIABETES MELLITUS
     Dosage: UNK
     Route: 048
  11. RAMIPRIL [Concomitant]
     Indication: HYPERTENSION
     Dosage: UNK
     Route: 048
  12. NALOXONE HCL W/OXYCODONE HCL [Concomitant]
     Indication: PAIN
     Dosage: UNK
     Route: 048
  13. ACICLOVIR [Concomitant]
     Dosage: UNK
     Route: 048
  14. METOPROLOL [Concomitant]
     Indication: HYPERTENSION
     Dosage: UNK

REACTIONS (1)
  - Bronchitis [Recovered/Resolved]
